FAERS Safety Report 16410499 (Version 10)
Quarter: 2020Q3

REPORT INFORMATION
  Report Type: Spontaneous
  Country: US (occurrence: US)
  Receive Date: 20190610
  Receipt Date: 20200925
  Transmission Date: 20201102
  Serious: No
  Sender: FDA-Public Use
  Company Number: US-PFIZER INC-2019245251

PATIENT
  Age: 76 Year
  Sex: Female
  Weight: 88 kg

DRUGS (5)
  1. CELEBREX [Suspect]
     Active Substance: CELECOXIB
     Indication: ARTHRITIS
     Dosage: 200 MG, 1X/DAY (WITH MEALS FOR 30 DAYS/THEN QUANTITY: 90 CAPSULES FOR 90 DAYS)
     Route: 048
  2. CELEBREX [Suspect]
     Active Substance: CELECOXIB
     Indication: ARTHRALGIA
  3. LYRICA [Concomitant]
     Active Substance: PREGABALIN
     Indication: FIBROMYALGIA
     Dosage: 75 MG, 3X/DAY
  4. CELEBREX [Suspect]
     Active Substance: CELECOXIB
     Indication: PAIN
  5. LYRICA [Concomitant]
     Active Substance: PREGABALIN
     Indication: BACK PAIN

REACTIONS (2)
  - Confusional state [Unknown]
  - Nasopharyngitis [Unknown]
